FAERS Safety Report 7359657-8 (Version None)
Quarter: 2011Q1

REPORT INFORMATION
  Report Type: 
  Country: None (occurrence: None)
  Receive Date: 20110317
  Receipt Date: 20110317
  Transmission Date: 20110831
  Serious: Yes (Other)
  Sender: FDA-Public Use
  Company Number: US-PFIZER INC-2005116432

PATIENT
  Sex: Male

DRUGS (1)
  1. NEURONTIN [Suspect]
     Indication: BIPOLAR DISORDER
     Dosage: 2400 MG PER DAY
     Dates: start: 20010101, end: 20020101

REACTIONS (8)
  - SUICIDE ATTEMPT [None]
  - ANXIETY [None]
  - ANGER [None]
  - DEPRESSION [None]
  - SUICIDAL IDEATION [None]
  - STERNAL FRACTURE [None]
  - HYPOMANIA [None]
  - DRUG INEFFECTIVE [None]
